FAERS Safety Report 7402036-5 (Version None)
Quarter: 2011Q2

REPORT INFORMATION
  Report Type: 
  Country: None (occurrence: None)
  Receive Date: 20110408
  Receipt Date: 20110329
  Transmission Date: 20111010
  Serious: Yes (Hospitalization)
  Sender: FDA-Public Use
  Company Number: KR-RANBAXY-2011RR-43449

PATIENT
  Age: 16 Year
  Sex: Male

DRUGS (1)
  1. MINOCYCLINE [Suspect]
     Indication: ACNE
     Dosage: 50 MG, BID
     Route: 048

REACTIONS (2)
  - STEVENS-JOHNSON SYNDROME [None]
  - PAROTITIS [None]
